FAERS Safety Report 9709989 (Version 2)
Quarter: 2013Q4

REPORT INFORMATION
  Report Type: Report from Study
  Country: DE (occurrence: DE)
  Receive Date: 20131126
  Receipt Date: 20131204
  Transmission Date: 20140711
  Serious: Yes (Other)
  Sender: FDA-Public Use
  Company Number: DE-BAYER-2013-142068

PATIENT
  Age: 50 Year
  Sex: Female

DRUGS (5)
  1. BETAFERON [Suspect]
     Indication: MULTIPLE SCLEROSIS
     Dosage: UNK
     Route: 058
  2. MIRTAZAPIN [Concomitant]
     Dosage: UNK
  3. SIMVASTATIN [Concomitant]
     Dosage: UNK
  4. SATIVEX [Concomitant]
  5. FAMPRIDINE [Concomitant]

REACTIONS (6)
  - Multiple sclerosis [None]
  - Visual impairment [None]
  - Injection site erythema [None]
  - Injection site induration [None]
  - Injection site pain [Recovered/Resolved]
  - Injection site swelling [Recovered/Resolved]
